FAERS Safety Report 9510484 (Version 2)
Quarter: 2013Q3

REPORT INFORMATION
  Report Type: Report from Study
  Country: US (occurrence: US)
  Receive Date: 20130909
  Receipt Date: 20130909
  Transmission Date: 20140515
  Serious: Yes (Hospitalization, Other)
  Sender: FDA-Public Use
  Company Number: US-TAKEDA-TPA2013A06551

PATIENT
  Age: 79 Year
  Sex: Male
  Weight: 95.9 kg

DRUGS (10)
  1. ALLOPURINOL [Suspect]
     Dosage: UNK UNK, QD
     Route: 048
     Dates: start: 20110307, end: 20130624
  2. FEBUXOSTAT [Suspect]
     Dosage: UNK UNK, QD
     Route: 048
     Dates: start: 20110307, end: 20130624
  3. ALLOPURINOL [Suspect]
     Dosage: UNK UNK, QD
     Route: 048
     Dates: start: 20130705
  4. FEBUXOSTAT [Suspect]
     Dosage: UNK UNK, QD
     Route: 048
     Dates: start: 20130705
  5. COLCHICINE [Concomitant]
     Indication: GOUT
     Dates: start: 20110214
  6. COLCHICINE [Concomitant]
     Dates: start: 20110606, end: 20110907
  7. METROPROLOL [Concomitant]
     Indication: HYPERTENSION
     Dosage: 50 MG, QD
     Route: 048
     Dates: start: 1987
  8. AMLODIPINE BESYLATE [Concomitant]
     Indication: HYPERTENSION
     Dosage: 5 MG, QD
     Route: 048
     Dates: start: 1987
  9. SIMVASTATIN [Concomitant]
     Indication: HYPERCHOLESTEROLAEMIA
     Dosage: 20 MG, QD
     Route: 048
     Dates: start: 2006
  10. NAPROXEN [Concomitant]
     Indication: GOUT
     Dosage: 500 MG, UNK
     Route: 048
     Dates: start: 2000

REACTIONS (1)
  - Cerebrovascular accident [Recovered/Resolved]
